FAERS Safety Report 9668233 (Version 3)
Quarter: 2013Q4

REPORT INFORMATION
  Report Type: Spontaneous
  Country: DE (occurrence: None)
  Receive Date: 20131101
  Receipt Date: 20131127
  Transmission Date: 20140711
  Serious: Yes (Death, Hospitalization)
  Sender: FDA-Public Use
  Company Number: SYM-2013-12330

PATIENT
  Age: 49 Year
  Sex: Male

DRUGS (14)
  1. 5-FU [Suspect]
     Indication: COLORECTAL CANCER METASTATIC
     Route: 040
     Dates: start: 20130416, end: 20130416
  2. IRINOTECAN [Suspect]
     Indication: COLORECTAL CANCER METASTATIC
     Route: 041
     Dates: start: 20130416, end: 20130416
  3. LEUCOVORIN (FOLINIC ACID) (SOLUTION FOR INFUSION) (FOLINIC ACID) [Suspect]
     Indication: COLORECTAL CANCER METASTATIC
     Route: 041
     Dates: start: 20130416, end: 20130416
  4. AFLIBERCEPT (AFLIBERCEPT) (SOLUTION FOR INFUSION) (AFLIBERCEPT) [Suspect]
     Indication: COLORECTAL CANCER METASTATIC
     Route: 041
     Dates: start: 20130416, end: 20130416
  5. HEPARIN GROUP (HEPARIN GROUP) [Concomitant]
  6. MIRTAZAPINE (MIRTAZAPINE) (MIRTAZAPINE) [Concomitant]
  7. PANTOZOL (PANTOPRAZOLE SODIUM SESQUIHYDRATE) (PANTOPRAZOLE SODIUM SESQUIHYDRATE) [Concomitant]
  8. LASIX (FUROSEMIDE) (FUROSEMIDE) [Concomitant]
  9. ACE INHIBITOR NOS (ACE INHIBITORS) (NULL) [Concomitant]
  10. ALLOPURINOL (ALLOPURINOL) (ALLOPURINOL) [Concomitant]
  11. ANTIBIOTICS (ANTIBIOTICS) [Concomitant]
  12. AMLODIPINE (AMLODIPINE) (AMLODIPINE) [Concomitant]
  13. MOVICOL (MOVICOL/01749801) (SODIUM BICARBONATE, POTASSIUM CHLORIDE, SODIUM CHLORIDE, MACROGOL 3350) [Concomitant]
  14. FORTECORTIN (DEXAMETHASONE) (DEXAMETHASONE) [Concomitant]

REACTIONS (4)
  - Infection [None]
  - Pneumonia [None]
  - Stoma site haemorrhage [None]
  - Cardiovascular insufficiency [None]
